FAERS Safety Report 4714180-1 (Version None)
Quarter: 2005Q2

REPORT INFORMATION
  Report Type: 
  Country: None (occurrence: None)
  Receive Date: 20050630
  Receipt Date: 20050426
  Transmission Date: 20051028
  Serious: Yes (Hospitalization, Disabling)
  Sender: FDA-Public Use
  Company Number: WAES 0504USA04531

PATIENT
  Age: 50 Year
  Sex: Female

DRUGS (5)
  1. HYZAAR [Suspect]
     Indication: CARDIOMEGALY
     Dosage: 100/25 MG/DAILY/PO
     Route: 048
     Dates: start: 20050201
  2. HYZAAR [Suspect]
     Indication: FLUID RETENTION
     Dosage: 100/25 MG/DAILY/PO
     Route: 048
     Dates: start: 20050201
  3. ADVAIR DISKUS 100/50 [Concomitant]
  4. AVANDIA [Concomitant]
  5. NITROGLYCERIN [Concomitant]

REACTIONS (1)
  - PARAESTHESIA [None]
